FAERS Safety Report 8417326-7 (Version None)
Quarter: 2012Q2

REPORT INFORMATION
  Report Type: 
  Country: None (occurrence: None)
  Receive Date: 20120606
  Receipt Date: 20120604
  Transmission Date: 20120825
  Serious: No
  Sender: FDA-Public Use
  Company Number: US-BAYER-2012-055915

PATIENT

DRUGS (1)
  1. CIPROFLOXACIN HCL [Suspect]
     Indication: SINUSITIS

REACTIONS (5)
  - ROTATOR CUFF SYNDROME [None]
  - TENDONITIS [None]
  - RASH [None]
  - PAIN [None]
  - DECREASED ACTIVITY [None]
